FAERS Safety Report 18924669 (Version 3)
Quarter: 2022Q1

REPORT INFORMATION
  Report Type: Spontaneous
  Country: US (occurrence: US)
  Receive Date: 20210222
  Receipt Date: 20220310
  Transmission Date: 20220423
  Serious: No
  Sender: FDA-Public Use
  Company Number: US-PFIZER INC-2021161169

PATIENT
  Age: 60 Year
  Sex: Female

DRUGS (1)
  1. IBRANCE [Suspect]
     Active Substance: PALBOCICLIB
     Dosage: 125 MG, CYCLIC (DAILY 21 DAYS ON AND 7 DAYS OFF)
     Route: 048
     Dates: start: 20201223

REACTIONS (6)
  - Stomatitis [Recovering/Resolving]
  - Mouth ulceration [Unknown]
  - Muscle spasms [Unknown]
  - Headache [Unknown]
  - Paraesthesia [Unknown]
  - Urinary tract infection [Unknown]
